FAERS Safety Report 15129332 (Version 4)
Quarter: 2018Q4

REPORT INFORMATION
  Report Type: Report from Study
  Country: US (occurrence: US)
  Receive Date: 20180711
  Receipt Date: 20181205
  Transmission Date: 20190204
  Serious: Yes (Other)
  Sender: FDA-Public Use
  Company Number: US-GLAXOSMITHKLINE-US2018GSK119899

PATIENT
  Age: 62 Year
  Sex: Female

DRUGS (12)
  1. FLONASE [Concomitant]
     Active Substance: FLUTICASONE PROPIONATE
     Indication: UPPER-AIRWAY COUGH SYNDROME
  2. PREDNISONE. [Concomitant]
     Active Substance: PREDNISONE
     Dosage: 10 MG, QOD
  3. ALBUTEROL. [Concomitant]
     Active Substance: ALBUTEROL
     Indication: COUGH
  4. OXYGEN. [Concomitant]
     Active Substance: OXYGEN
     Dosage: UNK, PRN
  5. ADVAIR HFA [Concomitant]
     Active Substance: FLUTICASONE PROPIONATE\SALMETEROL XINAFOATE
     Indication: DYSPNOEA
  6. MEPOLIZUMAB [Suspect]
     Active Substance: MEPOLIZUMAB
     Indication: EOSINOPHILIC GRANULOMATOSIS WITH POLYANGIITIS
     Dosage: 300 MG, UNK
     Dates: start: 20180630
  7. ZYRTEC [Concomitant]
     Active Substance: CETIRIZINE HYDROCHLORIDE
     Indication: UPPER-AIRWAY COUGH SYNDROME
  8. ALBUTEROL. [Concomitant]
     Active Substance: ALBUTEROL
     Indication: DYSPNOEA
  9. PANTOPRAZOLE [Concomitant]
     Active Substance: PANTOPRAZOLE
  10. ADVAIR HFA [Concomitant]
     Active Substance: FLUTICASONE PROPIONATE\SALMETEROL XINAFOATE
     Indication: COUGH
  11. ZYRTEC [Concomitant]
     Active Substance: CETIRIZINE HYDROCHLORIDE
     Indication: COUGH
  12. FLONASE [Concomitant]
     Active Substance: FLUTICASONE PROPIONATE
     Indication: COUGH

REACTIONS (33)
  - Drug ineffective [Unknown]
  - Dyspnoea [Recovered/Resolved]
  - Abdominal pain [Not Recovered/Not Resolved]
  - Upper-airway cough syndrome [Recovered/Resolved]
  - Nausea [Unknown]
  - Viral infection [Unknown]
  - Pleural effusion [Unknown]
  - Cough [Not Recovered/Not Resolved]
  - Decreased appetite [Not Recovered/Not Resolved]
  - Hospitalisation [Unknown]
  - Gastritis [Unknown]
  - Product dose omission [Unknown]
  - Head discomfort [Unknown]
  - Back pain [Unknown]
  - Electrocardiogram abnormal [Unknown]
  - Pulmonary artery dilatation [Unknown]
  - Fluid retention [Not Recovered/Not Resolved]
  - Cataract [Not Recovered/Not Resolved]
  - Multiple allergies [Unknown]
  - Hernia [Unknown]
  - Weight decreased [Unknown]
  - Malaise [Unknown]
  - Sluggishness [Not Recovered/Not Resolved]
  - Vomiting [Unknown]
  - Eructation [Unknown]
  - Gastric ulcer [Unknown]
  - Pain [Unknown]
  - Diabetes mellitus [Unknown]
  - Fatigue [Not Recovered/Not Resolved]
  - Wrong technique in device usage process [Unknown]
  - Choking sensation [Unknown]
  - Swelling [Not Recovered/Not Resolved]
  - Myalgia [Unknown]

NARRATIVE: CASE EVENT DATE: 20180921
